FAERS Safety Report 8148479 (Version 3)
Quarter: 2013Q2

REPORT INFORMATION
  Report Type: Spontaneous
  Country: US (occurrence: None)
  Receive Date: 20110907
  Receipt Date: 20130410
  Transmission Date: 20140414
  Serious: Yes (Other)
  Sender: FDA-Public Use
  Company Number: JPI-P-016743

PATIENT
  Age: 63 Year
  Sex: Female
  Weight: 63.5 kg

DRUGS (3)
  1. XYREM [Suspect]
     Indication: CATAPLEXY
     Dosage: 6 GM (3 GM, 2 IN 1 D), ORAL
     Route: 048
     Dates: start: 20030411
  2. BUPROPION HCL [Concomitant]
     Indication: PRODUCT USED FOR UNKNOWN INDICATION
  3. MODAFINIL [Concomitant]
     Indication: PRODUCT USED FOR UNKNOWN INDICATION

REACTIONS (12)
  - Ovarian cancer [None]
  - Arthropod bite [None]
  - Inflammation [None]
  - Enuresis [None]
  - Weight decreased [None]
  - Crying [None]
  - Weight increased [None]
  - Arthropod bite [None]
  - Inappropriate schedule of drug administration [None]
  - Enuresis [None]
  - Stress [None]
  - Depression [None]
